FAERS Safety Report 6151880-3 (Version None)
Quarter: 2009Q2

REPORT INFORMATION
  Report Type: 
  Country: None (occurrence: None)
  Receive Date: 20090410
  Receipt Date: 20090402
  Transmission Date: 20091009
  Serious: Yes (Other)
  Sender: FDA-Public Use
  Company Number: US-ELI_LILLY_AND_COMPANY-US200904000521

PATIENT
  Sex: Male

DRUGS (10)
  1. HUMALOG [Suspect]
     Dosage: 3 U, EACH MORNING
  2. HUMALOG [Suspect]
     Dosage: 5 U, UNK
  3. HUMALOG [Suspect]
     Dosage: 3 U, EACH EVENING
  4. GLUCAGON [Suspect]
  5. HUMULIN N [Suspect]
     Dates: start: 19690101
  6. VASOTEC [Concomitant]
  7. HYDROCHLOROTHIAZIDE [Concomitant]
  8. ASPIRIN [Concomitant]
  9. NOVOLOG [Concomitant]
  10. NOVOLIN [Concomitant]

REACTIONS (13)
  - BLOOD GLUCOSE DECREASED [None]
  - BLOOD GLUCOSE INCREASED [None]
  - CHOKING [None]
  - COMA [None]
  - CONVULSION [None]
  - DYSPHAGIA [None]
  - ERYTHEMA [None]
  - HYPOACUSIS [None]
  - INFLUENZA LIKE ILLNESS [None]
  - INJECTION SITE HAEMORRHAGE [None]
  - MENTAL IMPAIRMENT [None]
  - SHOCK HYPOGLYCAEMIC [None]
  - THERAPEUTIC RESPONSE DELAYED [None]
